FAERS Safety Report 12386620 (Version 1)
Quarter: 2016Q2

REPORT INFORMATION
  Report Type: Spontaneous
  Country: US (occurrence: US)
  Receive Date: 20160519
  Receipt Date: 20160519
  Transmission Date: 20160815
  Serious: No
  Sender: FDA-Public Use
  Company Number: US-TEVA-660061USA

PATIENT
  Sex: Female
  Weight: 95.34 kg

DRUGS (1)
  1. COPAXONE [Suspect]
     Active Substance: GLATIRAMER ACETATE

REACTIONS (5)
  - Urinary incontinence [Unknown]
  - Superficial vein prominence [Unknown]
  - Burning sensation [Unknown]
  - Palmar erythema [Unknown]
  - Muscle spasms [Unknown]
